FAERS Safety Report 6162964-8 (Version None)
Quarter: 2009Q2

REPORT INFORMATION
  Report Type: 
  Country: None (occurrence: None)
  Receive Date: 20090420
  Receipt Date: 20090410
  Transmission Date: 20091009
  Serious: Yes (Hospitalization)
  Sender: FDA-Public Use
  Company Number: 2009SP004608

PATIENT
  Age: 54 Year
  Sex: Male

DRUGS (6)
  1. PEG-INTRON [Suspect]
     Indication: HEPATITIS C
     Dosage: 150 MCG; QW; SC
     Route: 058
  2. RIBAVIRIN [Suspect]
     Indication: HEPATITIS C
     Dosage: 200 MCG; QD; PO
     Route: 048
  3. POTASSIUM (CON.) [Concomitant]
  4. METFORMIN (CON.) [Concomitant]
  5. LISINOPRIL/ HYDROCHLOROTHIAZIDE (CON.) [Concomitant]
  6. HYDROCHLOROTHIAZIDE (CON.) [Concomitant]

REACTIONS (3)
  - CHOLELITHIASIS [None]
  - PANCREATITIS [None]
  - PLATELET COUNT DECREASED [None]
